FAERS Safety Report 9607234 (Version 19)
Quarter: 2015Q1

REPORT INFORMATION
  Report Type: Report from Study
  Country: KR (occurrence: KR)
  Receive Date: 20131009
  Receipt Date: 20150311
  Transmission Date: 20150721
  Serious: Yes (Hospitalization)
  Sender: FDA-Public Use
  Company Number: KR-MERCK-1309KOR007608

PATIENT
  Age: 42 Year
  Sex: Female

DRUGS (15)
  1. VIRAMID [Suspect]
     Active Substance: RIBAVIRIN
     Dosage: 1 CAPSULE, BID, 400 MG DAILY
     Route: 048
     Dates: start: 20131119, end: 20140102
  2. PEGINTRON [Suspect]
     Active Substance: PEGINTERFERON ALFA-2B
     Dosage: 80 MICROGRAM, QW
     Route: 042
     Dates: start: 20131101, end: 20131115
  3. DICLOFENAC SODIUM YUTOKU [Concomitant]
     Indication: MYALGIA
     Dosage: 2 ML DAILY, PRN, (75 MG/2ML/AMP)
     Route: 042
     Dates: start: 20110703, end: 20140723
  4. BOCEPREVIR [Suspect]
     Active Substance: BOCEPREVIR
     Indication: CHRONIC HEPATITIS C
     Dosage: 4 CAPSULE, TID, 2400 MG PER DAY
     Route: 048
     Dates: start: 20130927, end: 20140509
  5. PEGINTRON [Suspect]
     Active Substance: PEGINTERFERON ALFA-2B
     Dosage: 72 MICROGRAM, QW
     Route: 042
     Dates: start: 20131005, end: 20131026
  6. PEGINTRON [Suspect]
     Active Substance: PEGINTERFERON ALFA-2B
     Dosage: 73.5MCG, QW
     Route: 042
     Dates: start: 20131122, end: 20131122
  7. PEGINTRON [Suspect]
     Active Substance: PEGINTERFERON ALFA-2B
     Dosage: 80 MICROGRAM, QW
     Route: 042
     Dates: start: 20131129, end: 20140626
  8. VIRAMID [Suspect]
     Active Substance: RIBAVIRIN
     Dosage: 600 MG (ALSO REPORTED AS 3 CAPSULES) DAILY, BID
     Route: 048
     Dates: start: 20140103, end: 20140109
  9. VIRAMID [Suspect]
     Active Substance: RIBAVIRIN
     Dosage: 2 CAPSULES, BID, 800 MG DAILY
     Route: 048
     Dates: start: 20140110, end: 20140805
  10. VIRAMID [Suspect]
     Active Substance: RIBAVIRIN
     Indication: CHRONIC HEPATITIS C
     Dosage: 2 CAPSULES, BID, 800 MG DAILY
     Route: 048
     Dates: start: 20130830, end: 20131118
  11. STILLEN [Concomitant]
     Indication: GASTRITIS
     Dosage: 1 TABLET, BID, 120 MG DAILY
     Route: 048
     Dates: start: 20130327, end: 20131004
  12. PEGINTRON [Suspect]
     Active Substance: PEGINTERFERON ALFA-2B
     Indication: CHRONIC HEPATITIS C
     Dosage: 80 MICROGRAM, QW
     Route: 042
     Dates: start: 20130830, end: 20130927
  13. PEGINTRON [Suspect]
     Active Substance: PEGINTERFERON ALFA-2B
     Dosage: 80 MICROGRAM, QW
     Route: 042
     Dates: start: 20140711, end: 20140731
  14. PHENIRAMINE (CHLORPHENIRAMINE MALEATE) [Concomitant]
     Active Substance: CHLORPHENIRAMINE MALEATE
     Dosage: 0.5 AMP, PRN, 2 MG DAILY
     Route: 042
     Dates: start: 20130830, end: 20140723
  15. TYLENOL [Concomitant]
     Active Substance: ACETAMINOPHEN
     Dosage: 650 MG OR 1950 MG, PRN
     Route: 048
     Dates: start: 20100418, end: 20140906

REACTIONS (42)
  - Osteoarthritis [Recovered/Resolved]
  - Neutropenia [Recovered/Resolved]
  - Vomiting [Recovered/Resolved]
  - Dry eye [Recovering/Resolving]
  - Neutropenia [Recovered/Resolved]
  - Nausea [Recovered/Resolved]
  - Abdominal discomfort [Recovered/Resolved]
  - Nausea [Recovered/Resolved]
  - Nausea [Recovered/Resolved]
  - Headache [Recovered/Resolved]
  - Diarrhoea [Recovered/Resolved]
  - Pyelonephritis acute [Recovered/Resolved]
  - Asthenia [Recovered/Resolved]
  - Anaemia [Recovering/Resolving]
  - Asthenia [Recovered/Resolved]
  - Nausea [Recovered/Resolved]
  - Gastrooesophageal reflux disease [Recovering/Resolving]
  - Stomatitis [Recovered/Resolved]
  - Paraesthesia [Recovered/Resolved]
  - Abdominal pain lower [Recovered/Resolved]
  - Urinary retention [Recovered/Resolved]
  - Dermatitis contact [Recovering/Resolving]
  - Headache [Recovered/Resolved]
  - Headache [Recovering/Resolving]
  - Vomiting [Recovered/Resolved]
  - Headache [Recovered/Resolved]
  - Nausea [Recovered/Resolved]
  - Tremor [Recovered/Resolved]
  - Swelling [Recovering/Resolving]
  - Pyelonephritis acute [Recovered/Resolved]
  - Nausea [Recovered/Resolved]
  - Blepharitis [Recovered/Resolved]
  - Dizziness [Recovered/Resolved]
  - Hypophagia [Recovered/Resolved]
  - Dyspepsia [Recovered/Resolved]
  - Weight increased [Recovered/Resolved]
  - Headache [Recovered/Resolved]
  - Nausea [Recovered/Resolved]
  - Palpitations [Recovered/Resolved]
  - Vomiting [Recovered/Resolved]
  - Alopecia [Recovered/Resolved]
  - Constipation [Recovered/Resolved]

NARRATIVE: CASE EVENT DATE: 20130910
